FAERS Safety Report 9752885 (Version 1)
Quarter: 2013Q4

REPORT INFORMATION
  Report Type: Spontaneous
  Country: IT (occurrence: IT)
  Receive Date: 20131213
  Receipt Date: 20131213
  Transmission Date: 20140711
  Serious: Yes (Other)
  Sender: FDA-Public Use
  Company Number: IT-ASTRAZENECA-2013SE89317

PATIENT
  Age: 20351 Day
  Sex: Male
  Weight: 83 kg

DRUGS (3)
  1. ZESTRIL [Suspect]
     Indication: HYPERTENSION
     Route: 048
     Dates: start: 20111021, end: 20131125
  2. LOBIDIUR [Concomitant]
     Dosage: 5 /12.5 MG FILM COATED TABLETS
  3. TRANQUIRIT [Concomitant]
     Dosage: 0.5% ORAL DROPS ,SOLUTION
     Route: 048

REACTIONS (5)
  - Flushing [Recovering/Resolving]
  - Hypertensive crisis [Recovering/Resolving]
  - Anxiety [Recovering/Resolving]
  - Palpitations [Recovering/Resolving]
  - Drug ineffective [Unknown]
